FAERS Safety Report 4925883-8 (Version None)
Quarter: 2006Q1

REPORT INFORMATION
  Report Type: 
  Country: None (occurrence: None)
  Receive Date: 20060228
  Receipt Date: 20050408
  Transmission Date: 20060701
  Serious: No
  Sender: FDA-Public Use
  Company Number: US-GLAXOSMITHKLINE-A0553404A

PATIENT
  Age: 34 Year
  Sex: Male

DRUGS (4)
  1. LAMICTAL [Suspect]
     Indication: BIPOLAR DISORDER
     Dosage: 100MG PER DAY
     Route: 048
     Dates: start: 20050207, end: 20050408
  2. ABILIFY [Concomitant]
  3. ZOLOFT [Concomitant]
  4. ADDERALL 10 [Concomitant]

REACTIONS (4)
  - RASH PAPULAR [None]
  - RASH PUSTULAR [None]
  - SKIN LESION [None]
  - SWELLING [None]
